FAERS Safety Report 5804279-0 (Version None)
Quarter: 2008Q3

REPORT INFORMATION
  Report Type: 
  Country: None (occurrence: None)
  Receive Date: 20080707
  Receipt Date: 20080630
  Transmission Date: 20090109
  Serious: Yes (Life-Threatening, Hospitalization)
  Sender: FDA-Public Use
  Company Number: 2008-02388

PATIENT
  Age: 66 Year
  Sex: Female
  Weight: 50 kg

DRUGS (3)
  1. VELCADE [Suspect]
     Indication: MULTIPLE MYELOMA
     Dosage: 1.3 MG/M2, NTRAVENOUS
     Route: 042
     Dates: start: 20080626, end: 20080626
  2. VORICONAZOLE (VORICONAZOLE) TABLET [Concomitant]
  3. DEXAMETHASONE [Concomitant]

REACTIONS (3)
  - DYSPNOEA [None]
  - HAEMORRHAGIC DIATHESIS [None]
  - LUNG DISORDER [None]
